FAERS Safety Report 5537265-9 (Version None)
Quarter: 2007Q4

REPORT INFORMATION
  Report Type: 
  Country: None (occurrence: None)
  Receive Date: 20071120
  Receipt Date: 20070806
  Transmission Date: 20080405
  Serious: No
  Sender: FDA-Public Use
  Company Number: WAES 0708USA04114

PATIENT
  Sex: 0

DRUGS (1)
  1. JANUVIA [Suspect]

REACTIONS (1)
  - DRUG INEFFECTIVE [None]
